FAERS Safety Report 8122432 (Version 2)
Quarter: 2012Q4

REPORT INFORMATION
  Report Type: 
  Country: FR (occurrence: FR)
  Receive Date: 20110906
  Receipt Date: 20121009
  Transmission Date: 20130627
  Serious: Yes (Disabling, Other)
  Sender: FDA-Public Use
  Company Number: PHHY2011FR76719

PATIENT
  Sex: Male

DRUGS (11)
  1. GLIVEC [Suspect]
     Indication: CHRONIC MYELOID LEUKAEMIA
     Dosage: 600 mg, daily
     Route: 048
     Dates: start: 200203, end: 201111
  2. TAHOR [Suspect]
     Dosage: UNK
     Route: 048
     Dates: start: 2001, end: 201111
  3. SPRYCEL [Concomitant]
     Dosage: UNK UKN, UNK
  4. LASILIX [Concomitant]
     Dosage: 1 DF, QD
     Route: 048
  5. EZETROL [Concomitant]
     Dosage: 1 DF, QD
     Route: 048
  6. BISOPROLOL [Concomitant]
     Dosage: 2.5 mg, daily
     Route: 048
  7. INIPOMP [Concomitant]
     Dosage: 1 DF, QD
     Route: 048
     Dates: start: 2001
  8. COVERSYL [Concomitant]
     Dosage: 1 DF, QD
     Dates: start: 2001
  9. EXFORGE [Concomitant]
     Dosage: 10 mg/160 mg, daily
     Route: 048
     Dates: start: 2001
  10. KARDEGIC [Concomitant]
     Dosage: 1 DF, QD
     Dates: start: 2011
  11. PLAVIX [Concomitant]
     Dosage: 1 DF, QD
     Route: 048
     Dates: start: 201202

REACTIONS (10)
  - Lumbar spinal stenosis [Unknown]
  - Intermittent claudication [Unknown]
  - Pain in extremity [Unknown]
  - Polyneuropathy [Not Recovered/Not Resolved]
  - Condition aggravated [Not Recovered/Not Resolved]
  - Peripheral sensorimotor neuropathy [Unknown]
  - Areflexia [Unknown]
  - Oedema peripheral [Unknown]
  - Muscular weakness [Unknown]
  - Drug ineffective [Unknown]
